FAERS Safety Report 23125270 (Version 1)
Quarter: 2023Q4

REPORT INFORMATION
  Report Type: Spontaneous
  Country: US (occurrence: None)
  Receive Date: 20231030
  Receipt Date: 20231030
  Transmission Date: 20240110
  Serious: Yes (Disabling, Other)
  Sender: FDA-Public Use
  Company Number: None

PATIENT
  Age: 61 Year
  Sex: Female

DRUGS (1)
  1. FLECAINIDE ACETATE [Suspect]
     Active Substance: FLECAINIDE ACETATE
     Indication: Atrial fibrillation
     Dates: start: 20211210

REACTIONS (10)
  - Asthenia [None]
  - Dyspnoea [None]
  - Abdominal pain [None]
  - Abdominal pain upper [None]
  - Fatigue [None]
  - Nausea [None]
  - Asthenia [None]
  - Decreased appetite [None]
  - Anxiety [None]
  - Loss of personal independence in daily activities [None]
